FAERS Safety Report 18549332 (Version 1)
Quarter: 2020Q4

REPORT INFORMATION
  Report Type: Spontaneous
  Country: US (occurrence: US)
  Receive Date: 20201126
  Receipt Date: 20201126
  Transmission Date: 20210114
  Serious: Yes (Other)
  Sender: FDA-Public Use
  Company Number: US-PFIZER INC-2020461142

PATIENT
  Age: 53 Year
  Sex: Female

DRUGS (2)
  1. ENBREL [Suspect]
     Active Substance: ETANERCEPT
     Indication: RHEUMATOID ARTHRITIS
     Dosage: 50 MILLIGRAM, QWK
     Route: 065
     Dates: start: 2019, end: 2019
  2. ENBREL [Suspect]
     Active Substance: ETANERCEPT
     Dosage: 50 MILLIGRAM, QWK
     Route: 065
     Dates: start: 202008

REACTIONS (15)
  - Device issue [Unknown]
  - Immune system disorder [Unknown]
  - Respiratory tract infection [Unknown]
  - Choking [Unknown]
  - Injection site pain [Unknown]
  - Cough [Unknown]
  - Wrong technique in device usage process [Unknown]
  - Bronchitis [Unknown]
  - Fear of injection [Unknown]
  - Rheumatoid arthritis [Unknown]
  - Nodule [Unknown]
  - Drug dose omission by device [Unknown]
  - Urinary tract infection [Unknown]
  - Musculoskeletal disorder [Unknown]
  - Joint range of motion decreased [Unknown]

NARRATIVE: CASE EVENT DATE: 2019
